FAERS Safety Report 17582216 (Version 1)
Quarter: 2020Q1

REPORT INFORMATION
  Report Type: Spontaneous
  Country: US (occurrence: US)
  Receive Date: 20200325
  Receipt Date: 20200325
  Transmission Date: 20200409
  Serious: Yes (Other)
  Sender: FDA-Public Use
  Company Number: US-NAPPMUNDI-USA-2020-0150522

PATIENT
  Sex: Male

DRUGS (3)
  1. DILAUDID [Suspect]
     Active Substance: HYDROMORPHONE HYDROCHLORIDE
     Indication: PRODUCT USED FOR UNKNOWN INDICATION
     Route: 048
  2. HYSINGLA ER [Suspect]
     Active Substance: HYDROCODONE BITARTRATE
     Indication: PRODUCT USED FOR UNKNOWN INDICATION
     Route: 048
  3. MS CONTIN [Suspect]
     Active Substance: MORPHINE SULFATE
     Indication: PRODUCT USED FOR UNKNOWN INDICATION
     Route: 065

REACTIONS (12)
  - Cardiac disorder [Unknown]
  - Cerebrovascular accident [Unknown]
  - Confusional state [Unknown]
  - Brain injury [Unknown]
  - Seizure [Unknown]
  - Memory impairment [Unknown]
  - Loss of personal independence in daily activities [Unknown]
  - Overdose [Unknown]
  - Disturbance in attention [Unknown]
  - Cognitive disorder [Unknown]
  - Developmental delay [Unknown]
  - Drug dependence [Unknown]
